FAERS Safety Report 6231648-X (Version None)
Quarter: 2009Q2

REPORT INFORMATION
  Report Type: 
  Country: None (occurrence: None)
  Receive Date: 20090612
  Receipt Date: 20090612
  Transmission Date: 20091009
  Serious: No
  Sender: FDA-Public Use
  Company Number: None

PATIENT
  Sex: Female
  Weight: 63.05 kg

DRUGS (1)
  1. NIASPAN [Suspect]
     Indication: HIGH DENSITY LIPOPROTEIN DECREASED
     Dosage: 500MG  ONCE DAILY PO
     Route: 048
     Dates: start: 20090516, end: 20090611

REACTIONS (6)
  - BURNING SENSATION [None]
  - FEELING HOT [None]
  - HYPERAESTHESIA [None]
  - PARAESTHESIA [None]
  - RASH PAPULAR [None]
  - RASH PRURITIC [None]
